FAERS Safety Report 10120996 (Version 1)
Quarter: 2014Q2

REPORT INFORMATION
  Report Type: Spontaneous
  Country: GB (occurrence: IE)
  Receive Date: 20140425
  Receipt Date: 20140425
  Transmission Date: 20141212
  Serious: Yes (Hospitalization)
  Sender: FDA-Public Use
  Company Number: GB-GLAXOSMITHKLINE-B0987290A

PATIENT
  Age: 15 Year
  Sex: Female
  Weight: 66 kg

DRUGS (5)
  1. GENTAMICIN [Suspect]
     Indication: ACUTE PROMYELOCYTIC LEUKAEMIA
  2. TAZOCIN [Suspect]
  3. VESANOID [Suspect]
     Indication: ACUTE PROMYELOCYTIC LEUKAEMIA
     Dosage: 40MG PER DAY
     Route: 048
  4. VORICONAZOLE [Suspect]
     Indication: ACUTE PROMYELOCYTIC LEUKAEMIA
  5. ZOFRAN [Suspect]

REACTIONS (1)
  - Renal failure [Recovering/Resolving]
